FAERS Safety Report 5495263-8 (Version None)
Quarter: 2007Q4

REPORT INFORMATION
  Report Type: 
  Country: None (occurrence: None)
  Receive Date: 20071024
  Receipt Date: 20071011
  Transmission Date: 20080405
  Serious: Yes (Hospitalization)
  Sender: FDA-Public Use
  Company Number: FR-PFIZER INC-2007057781

PATIENT
  Sex: Male

DRUGS (7)
  1. ZAVEDOS POWDER, STERILE [Suspect]
     Indication: NON-HODGKIN'S LYMPHOMA
     Route: 042
     Dates: start: 20070511, end: 20070601
  2. OMEPRAZOLE [Suspect]
     Route: 048
     Dates: start: 20070601, end: 20070608
  3. KIDROLASE [Suspect]
     Indication: NON-HODGKIN'S LYMPHOMA
     Route: 030
     Dates: start: 20070521, end: 20070529
  4. VINCRISTINE ^FAULDING^ [Concomitant]
     Route: 042
     Dates: start: 20070511, end: 20070525
  5. NONAN [Concomitant]
     Route: 042
  6. CERNEVIT-12 [Concomitant]
     Route: 042
  7. SOLU-MEDROL [Concomitant]

REACTIONS (1)
  - RHABDOMYOLYSIS [None]
